FAERS Safety Report 6359192-X (Version None)
Quarter: 2009Q3

REPORT INFORMATION
  Report Type: 
  Country: None (occurrence: None)
  Receive Date: 20090917
  Receipt Date: 20090910
  Transmission Date: 20100115
  Serious: Yes (Other)
  Sender: FDA-Public Use
  Company Number: US-JNJFOC-20090903895

PATIENT
  Sex: Female
  Weight: 58.97 kg

DRUGS (9)
  1. FENTANYL TRANSDERMAL SYSTEM [Suspect]
     Route: 062
     Dates: start: 20090101, end: 20090301
  2. FENTANYL TRANSDERMAL SYSTEM [Suspect]
     Indication: BACK PAIN
     Route: 062
     Dates: start: 20090101, end: 20090301
  3. FENTANYL TRANSDERMAL SYSTEM [Suspect]
  4. FENTANYL TRANSDERMAL SYSTEM [Suspect]
  5. FENTANYL TRANSDERMAL SYSTEM [Suspect]
     Indication: BACK PAIN
  6. SOMA [Concomitant]
     Indication: BACK PAIN
     Route: 048
  7. NEURONTIN [Concomitant]
     Indication: BACK PAIN
     Route: 048
  8. DILAUDID [Concomitant]
     Indication: BACK PAIN
     Dosage: AS NEEDED
     Route: 048
  9. UNKNOWN MEDICATION [Concomitant]
     Route: 065

REACTIONS (4)
  - DEVICE ADHESION ISSUE [None]
  - MALAISE [None]
  - WEIGHT INCREASED [None]
  - WRONG TECHNIQUE IN DRUG USAGE PROCESS [None]
